FAERS Safety Report 6911838-0 (Version None)
Quarter: 2010Q3

REPORT INFORMATION
  Report Type: 
  Country: None (occurrence: None)
  Receive Date: 20100806
  Receipt Date: 20070817
  Transmission Date: 20110219
  Serious: No
  Sender: FDA-Public Use
  Company Number: US-PFIZER INC-2007069216

PATIENT
  Sex: Female
  Weight: 111.13 kg

DRUGS (1)
  1. DETROL LA [Suspect]
     Indication: BLADDER DISORDER
     Route: 048
     Dates: start: 20070801, end: 20070809

REACTIONS (3)
  - OEDEMA PERIPHERAL [None]
  - PRURITUS [None]
  - SKIN BURNING SENSATION [None]
